FAERS Safety Report 21996612 (Version 1)
Quarter: 2023Q1

REPORT INFORMATION
  Report Type: Spontaneous
  Country: JP (occurrence: JP)
  Receive Date: 20230215
  Receipt Date: 20230215
  Transmission Date: 20230418
  Serious: Yes (Hospitalization, Other)
  Sender: FDA-Public Use
  Company Number: JP-Covis Pharma-18683

PATIENT
  Age: 65 Year
  Sex: Male

DRUGS (7)
  1. CICLESONIDE [Suspect]
     Active Substance: CICLESONIDE
     Indication: COVID-19 pneumonia
     Dosage: DOSAGE UNKNOWN
     Route: 065
  2. MEROPENEM [Suspect]
     Active Substance: MEROPENEM
     Indication: COVID-19 pneumonia
     Dosage: DOSAGE UNKNOWN
  3. METHYLPREDNISOLONE [Suspect]
     Active Substance: METHYLPREDNISOLONE
     Indication: COVID-19 pneumonia
     Dosage: DOSAGE UNKNOWN
  4. FAVIPIRAVIR [Suspect]
     Active Substance: FAVIPIRAVIR
     Indication: COVID-19 pneumonia
     Dosage: DOSAGE UNKNOWN
  5. HYDROXYCHLOROQUINE SULFATE [Suspect]
     Active Substance: HYDROXYCHLOROQUINE SULFATE
     Indication: COVID-19 pneumonia
     Dosage: DOSAGE UNKNOWN
  6. LOPINAVIR\RITONAVIR [Suspect]
     Active Substance: LOPINAVIR\RITONAVIR
     Indication: COVID-19 pneumonia
     Dosage: DOSAGE UNKNOWN
  7. HEPARIN [Concomitant]
     Active Substance: HEPARIN SODIUM
     Indication: Pulmonary embolism
     Dosage: DOSAGE UNKNOWN

REACTIONS (4)
  - Disseminated intravascular coagulation [Unknown]
  - Pulmonary embolism [Unknown]
  - Condition aggravated [Recovering/Resolving]
  - Product use in unapproved indication [Unknown]
